FAERS Safety Report 17059808 (Version 1)
Quarter: 2019Q4

REPORT INFORMATION
  Report Type: Spontaneous
  Country: US (occurrence: US)
  Receive Date: 20191121
  Receipt Date: 20191121
  Transmission Date: 20200122
  Serious: Yes (Other)
  Sender: FDA-Public Use
  Company Number: None

PATIENT
  Age: 53 Year
  Sex: Male
  Weight: 134 kg

DRUGS (2)
  1. CALCITONIN [Concomitant]
     Active Substance: CALCITONIN
     Dates: start: 20191119, end: 20191119
  2. CALCITONIN [Suspect]
     Active Substance: CALCITONIN
     Indication: HYPERCALCAEMIA
     Route: 058
     Dates: start: 20191119, end: 20191119

REACTIONS (2)
  - Flushing [None]
  - Vomiting [None]

NARRATIVE: CASE EVENT DATE: 20191119
